APPROVED DRUG PRODUCT: ABIRATERONE ACETATE
Active Ingredient: ABIRATERONE ACETATE
Strength: 125MG
Dosage Form/Route: TABLET;ORAL
Application: A212206 | Product #001
Applicant: TEVA PHARMACEUTICALS USA INC
Approved: Jun 24, 2022 | RLD: No | RS: No | Type: DISCN